FAERS Safety Report 11721083 (Version 2)
Quarter: 2015Q4

REPORT INFORMATION
  Report Type: Spontaneous
  Country: LB (occurrence: LB)
  Receive Date: 20151110
  Receipt Date: 20151222
  Transmission Date: 20160304
  Serious: Yes (Other)
  Sender: FDA-Public Use
  Company Number: LB-ABBVIE-15P-093-1498014-00

PATIENT
  Age: 19 Year
  Sex: Male

DRUGS (3)
  1. OLANZAPINE. [Suspect]
     Active Substance: OLANZAPINE
     Indication: PSYCHOTIC DISORDER
     Route: 065
  2. CARBAMAZEPINE. [Concomitant]
     Active Substance: CARBAMAZEPINE
     Indication: PRODUCT USED FOR UNKNOWN INDICATION
  3. VALPROIC ACID. [Suspect]
     Active Substance: VALPROIC ACID
     Indication: AFFECTIVE DISORDER
     Route: 065

REACTIONS (2)
  - Sedation [Unknown]
  - Hyperammonaemia [Unknown]
